FAERS Safety Report 5857761-4 (Version None)
Quarter: 2008Q3

REPORT INFORMATION
  Report Type: 
  Country: None (occurrence: None)
  Receive Date: 20080825
  Receipt Date: 20080825
  Transmission Date: 20090109
  Serious: Yes (Other)
  Sender: FDA-Public Use
  Company Number: None

PATIENT
  Age: 49 Year
  Sex: Male
  Weight: 106.5953 kg

DRUGS (1)
  1. SINGULAIR [Suspect]
     Indication: ASTHMA
     Dosage: 10MG 1QD PO
     Route: 048
     Dates: start: 20050101, end: 20071001

REACTIONS (2)
  - NEGATIVE THOUGHTS [None]
  - SELF-INJURIOUS IDEATION [None]
